FAERS Safety Report 18786007 (Version 1)
Quarter: 2021Q1

REPORT INFORMATION
  Report Type: Spontaneous
  Country: US (occurrence: US)
  Receive Date: 20210125
  Receipt Date: 20210125
  Transmission Date: 20210419
  Serious: No
  Sender: FDA-Public Use
  Company Number: US-ROCHE-2602058

PATIENT
  Age: 13 Year
  Sex: Male
  Weight: 76.27 kg

DRUGS (1)
  1. RITUXAN [Suspect]
     Active Substance: RITUXIMAB
     Indication: MYASTHENIA GRAVIS
     Dosage: ADMINISTERED VIA PERIPHERAL IV
     Route: 042
     Dates: start: 20190501

REACTIONS (4)
  - Off label use [Unknown]
  - Developmental delay [Unknown]
  - Intentional product use issue [Unknown]
  - Psychotic disorder [Unknown]
